FAERS Safety Report 9045193 (Version 1)
Quarter: 2013Q1

REPORT INFORMATION
  Report Type: Report from Study
  Country: US (occurrence: US)
  Receive Date: 20130130
  Receipt Date: 20130130
  Transmission Date: 20140127
  Serious: No
  Sender: FDA-Public Use
  Company Number: US-ABBOTT-12P-163-0973948-00

PATIENT
  Sex: Female
  Weight: 68.1 kg

DRUGS (4)
  1. HUMIRA [Suspect]
     Indication: RHEUMATOID ARTHRITIS
     Route: 050
     Dates: start: 201204
  2. HYDROCODONE/ACETAMINOPHEN [Concomitant]
     Indication: ARTHRALGIA
     Dosage: 7.5/325 MG, AS REQUIRED
  3. CELEBREX [Concomitant]
     Indication: RHEUMATOID ARTHRITIS
  4. UNNAMED MEDICATION [Concomitant]
     Indication: HYPERTENSION

REACTIONS (8)
  - Scar [Not Recovered/Not Resolved]
  - Gait disturbance [Not Recovered/Not Resolved]
  - Herpes zoster [Recovered/Resolved]
  - Pain in extremity [Not Recovered/Not Resolved]
  - Pain [Not Recovered/Not Resolved]
  - Arthralgia [Not Recovered/Not Resolved]
  - Arthralgia [Not Recovered/Not Resolved]
  - Arthropathy [Not Recovered/Not Resolved]
